FAERS Safety Report 6377301-3 (Version None)
Quarter: 2009Q3

REPORT INFORMATION
  Report Type: 
  Country: None (occurrence: None)
  Receive Date: 20090925
  Receipt Date: 20090914
  Transmission Date: 20100115
  Serious: Yes (Hospitalization)
  Sender: FDA-Public Use
  Company Number: IN-WATSON-2009-07535

PATIENT
  Age: 27 Year
  Sex: Male

DRUGS (1)
  1. AFEDITAB CR [Suspect]
     Indication: HYPERTENSION
     Dosage: UNK

REACTIONS (1)
  - ACUTE GENERALISED EXANTHEMATOUS PUSTULOSIS [None]
